FAERS Safety Report 23759959 (Version 3)
Quarter: 2025Q4

REPORT INFORMATION
  Report Type: Spontaneous
  Country: US (occurrence: US)
  Receive Date: 20240419
  Receipt Date: 20251104
  Transmission Date: 20260118
  Serious: Yes (Hospitalization, Congenital Anomaly, Other)
  Sender: AMGEN
  Company Number: US-AMGEN-USASP2024074026

PATIENT

DRUGS (2)
  1. INFLIXIMAB [Suspect]
     Active Substance: INFLIXIMAB
     Indication: Exposure during pregnancy
     Dosage: UNK
     Route: 064
  2. INFLIXIMAB [Suspect]
     Active Substance: INFLIXIMAB
     Dosage: UNK
     Route: 063

REACTIONS (14)
  - Unevaluable event [Unknown]
  - Infection [Unknown]
  - Congenital anomaly [Unknown]
  - Foetal growth restriction [Unknown]
  - Colitis ulcerative [Unknown]
  - Low birth weight baby [Unknown]
  - Developmental delay [Unknown]
  - Upper respiratory tract infection [Unknown]
  - Diarrhoea [Unknown]
  - Small for dates baby [Unknown]
  - Premature baby [Unknown]
  - Foetal exposure during pregnancy [Unknown]
  - Exposure via breast milk [Unknown]
  - Eczema [Unknown]
